FAERS Safety Report 20929380 (Version 1)
Quarter: 2022Q2

REPORT INFORMATION
  Report Type: Spontaneous
  Country: GB (occurrence: GB)
  Receive Date: 20220608
  Receipt Date: 20220608
  Transmission Date: 20220721
  Serious: Yes (Hospitalization)
  Sender: FDA-Public Use
  Company Number: None

PATIENT
  Age: 54 Year
  Sex: Male
  Weight: 68 kg

DRUGS (2)
  1. EMICIZUMAB [Suspect]
     Active Substance: EMICIZUMAB
     Indication: Factor VIII deficiency
     Route: 058
     Dates: start: 20211112, end: 20211126
  2. TUROCTOCOG ALFA [Concomitant]
     Active Substance: TUROCTOCOG ALFA
     Indication: Ill-defined disorder

REACTIONS (1)
  - Renal infarct [Recovered/Resolved with Sequelae]

NARRATIVE: CASE EVENT DATE: 20211203
